FAERS Safety Report 23162602 (Version 2)
Quarter: 2023Q4

REPORT INFORMATION
  Report Type: Report from Study
  Country: US (occurrence: US)
  Receive Date: 20231109
  Receipt Date: 20231201
  Transmission Date: 20240110
  Serious: Yes (Hospitalization)
  Sender: FDA-Public Use
  Company Number: US-ABBVIE-5487801

PATIENT
  Sex: Female

DRUGS (2)
  1. VENCLEXTA [Suspect]
     Active Substance: VENETOCLAX
     Indication: Chronic lymphocytic leukaemia
     Route: 048
     Dates: start: 202310
  2. VENCLEXTA [Suspect]
     Active Substance: VENETOCLAX
     Indication: Chronic lymphocytic leukaemia
     Dosage: LAST ADMIN DATE 2023
     Route: 048
     Dates: start: 202303

REACTIONS (9)
  - Feeling cold [Unknown]
  - Fatigue [Unknown]
  - Chills [Unknown]
  - Pallor [Unknown]
  - Urinary tract infection bacterial [Unknown]
  - Productive cough [Unknown]
  - Vomiting [Unknown]
  - White blood cell count decreased [Unknown]
  - Narcolepsy [Unknown]

NARRATIVE: CASE EVENT DATE: 20230101
